FAERS Safety Report 9525113 (Version 1)
Quarter: 2013Q3

REPORT INFORMATION
  Report Type: Spontaneous
  Country: CA (occurrence: CA)
  Receive Date: 20130916
  Receipt Date: 20130916
  Transmission Date: 20140515
  Serious: Yes (Other)
  Sender: FDA-Public Use
  Company Number: CA-ELI_LILLY_AND_COMPANY-CA201309002356

PATIENT
  Sex: Female

DRUGS (4)
  1. CYMBALTA [Suspect]
     Indication: PAIN
     Dosage: 30 MG, UNKNOWN
  2. CYMBALTA [Suspect]
     Dosage: 60 MG, UNK
  3. CYMBALTA [Suspect]
     Dosage: 30 MG, UNK
  4. COUMADIN [Concomitant]
     Indication: PULMONARY EMBOLISM

REACTIONS (20)
  - Abasia [Recovering/Resolving]
  - Headache [Recovered/Resolved]
  - Insomnia [Unknown]
  - Headache [Recovering/Resolving]
  - Constipation [Not Recovered/Not Resolved]
  - Dizziness [Recovered/Resolved]
  - Nausea [Unknown]
  - Haematochezia [Unknown]
  - Agitation [Unknown]
  - Feeling abnormal [Unknown]
  - Anxiety [Unknown]
  - Hypoaesthesia [Not Recovered/Not Resolved]
  - Abdominal distension [Unknown]
  - Tic [Unknown]
  - Dyskinesia [Unknown]
  - Restless legs syndrome [Unknown]
  - Staring [Unknown]
  - Pain in extremity [Unknown]
  - Off label use [Unknown]
  - Muscle tightness [Not Recovered/Not Resolved]
